FAERS Safety Report 8218486-3 (Version None)
Quarter: 2012Q1

REPORT INFORMATION
  Report Type: 
  Country: None (occurrence: None)
  Receive Date: 20120319
  Receipt Date: 20120315
  Transmission Date: 20120608
  Serious: No
  Sender: FDA-Public Use
  Company Number: US-PFIZER INC-2012069731

PATIENT
  Sex: Female
  Weight: 113 kg

DRUGS (8)
  1. CHANTIX [Suspect]
     Indication: SMOKING CESSATION THERAPY
     Dosage: 1 MG, 2X/DAY
     Route: 048
  2. CONCERTA [Concomitant]
     Indication: ATTENTION DEFICIT/HYPERACTIVITY DISORDER
     Dosage: 54 MG, DAILY
  3. ACIPHEX [Concomitant]
     Indication: MIGRAINE
     Dosage: UNK, 2X/DAY
  4. LISINOPRIL [Concomitant]
     Indication: BLOOD PRESSURE ABNORMAL
     Dosage: 20 MG, DAILY
  5. LEXAPRO [Concomitant]
     Indication: DEPRESSION
     Dosage: 20 MG, 2X/DAY
  6. CHANTIX [Suspect]
     Dosage: 0.5 MG, DAILY
     Route: 048
     Dates: start: 20120310
  7. ABILIFY [Concomitant]
     Indication: DEPRESSION
     Dosage: 10 MG, DAILY
  8. NEXIUM [Concomitant]
     Indication: ABDOMINAL DISCOMFORT
     Dosage: 40 MG, 2X/DAY

REACTIONS (2)
  - VITAMIN D DEFICIENCY [None]
  - ABNORMAL BEHAVIOUR [None]
